FAERS Safety Report 9834802 (Version 2)
Quarter: 2014Q1

REPORT INFORMATION
  Report Type: Spontaneous
  Country: HU (occurrence: HU)
  Receive Date: 20140122
  Receipt Date: 20140122
  Transmission Date: 20141002
  Serious: Yes (Other)
  Sender: FDA-Public Use
  Company Number: HU-ACTAVIS-2013-23859

PATIENT
  Sex: Female

DRUGS (2)
  1. CARBOPLATIN (UNKNOWN) [Suspect]
     Indication: SMALL INTESTINE CARCINOMA
     Dosage: UNK
     Route: 065
  2. VEPESID [Suspect]
     Indication: SMALL INTESTINE CARCINOMA
     Dosage: UNK
     Route: 065

REACTIONS (4)
  - Muscle atrophy [Recovering/Resolving]
  - Sarcopenia [Recovering/Resolving]
  - Asthenia [Unknown]
  - Fatigue [Unknown]
